FAERS Safety Report 15656192 (Version 1)
Quarter: 2018Q4

REPORT INFORMATION
  Report Type: Spontaneous
  Country: IL (occurrence: IL)
  Receive Date: 20181126
  Receipt Date: 20181126
  Transmission Date: 20190205
  Serious: Yes (Congenital Anomaly, Other)
  Sender: FDA-Public Use
  Company Number: IL-SA-2017SA154759

PATIENT
  Sex: Female
  Weight: 2.8 kg

DRUGS (1)
  1. CEREZYME [Suspect]
     Active Substance: IMIGLUCERASE
     Indication: GAUCHER^S DISEASE
     Dosage: UNK UNK,UNK
     Route: 064
     Dates: start: 19960211, end: 20001010

REACTIONS (5)
  - Maternal exposure before pregnancy [Unknown]
  - Jaundice neonatal [Recovered/Resolved]
  - Dextrocardia [Unknown]
  - Pertussis [Recovered/Resolved]
  - Varicella [Recovered/Resolved]

NARRATIVE: CASE EVENT DATE: 20030129
